FAERS Safety Report 9601622 (Version 2)
Quarter: 2013Q4

REPORT INFORMATION
  Report Type: Spontaneous
  Country: RU (occurrence: RU)
  Receive Date: 20131007
  Receipt Date: 20131009
  Transmission Date: 20140711
  Serious: Yes (Other)
  Sender: FDA-Public Use
  Company Number: RU-JNJFOC-20130917505

PATIENT
  Age: 47 Year
  Sex: 0

DRUGS (3)
  1. INFLIXIMAB, RECOMBINANT [Suspect]
     Indication: RHEUMATOID ARTHRITIS
     Route: 042
  2. ANTI-HISTAMINE [Concomitant]
     Indication: PREMEDICATION
     Route: 065
  3. GLUCOCORTICOSTEROIDS [Concomitant]
     Indication: PREMEDICATION
     Route: 065

REACTIONS (3)
  - Respiratory failure [Recovering/Resolving]
  - Infusion related reaction [Recovering/Resolving]
  - Respiratory tract oedema [Recovering/Resolving]
